FAERS Safety Report 4672835-1 (Version None)
Quarter: 2005Q2

REPORT INFORMATION
  Report Type: 
  Country: None (occurrence: None)
  Receive Date: 20050523
  Receipt Date: 20050513
  Transmission Date: 20051028
  Serious: Yes (Hospitalization, Other)
  Sender: FDA-Public Use
  Company Number: KII-2005-0016584

PATIENT
  Age: 75 Year
  Sex: Male

DRUGS (5)
  1. OXYCODONE HCL [Suspect]
     Indication: CANCER PAIN
     Dosage: ORAL
     Route: 048
  2. SEROQUEL [Suspect]
     Dosage: ORAL
     Route: 048
  3. DIAZEPAM [Suspect]
  4. LISINOPRIL [Concomitant]
  5. SERUMLIPIDREDUCING AGENTS [Concomitant]

REACTIONS (11)
  - BLOOD CREATINE PHOSPHOKINASE INCREASED [None]
  - BLOOD CREATINE PHOSPHOKINASE MB INCREASED [None]
  - BLOOD URINE PRESENT [None]
  - COMA [None]
  - CONFUSIONAL STATE [None]
  - LOSS OF CONSCIOUSNESS [None]
  - MULTIPLE DRUG OVERDOSE [None]
  - NERVOUSNESS [None]
  - SOMNOLENCE [None]
  - TACHYCARDIA [None]
  - TROPONIN INCREASED [None]
